FAERS Safety Report 12781819 (Version 1)
Quarter: 2016Q3

REPORT INFORMATION
  Report Type: Spontaneous
  Country: US (occurrence: US)
  Receive Date: 20160926
  Receipt Date: 20160926
  Transmission Date: 20161109
  Serious: No
  Sender: FDA-Public Use
  Company Number: US-ASTRAZENECA-2016SE98105

PATIENT
  Sex: Male

DRUGS (2)
  1. ASPIRIN. [Concomitant]
     Active Substance: ASPIRIN
  2. BYDUREON [Suspect]
     Active Substance: EXENATIDE
     Dosage: ONCE PER WEEK
     Route: 065

REACTIONS (5)
  - Swelling [Unknown]
  - Injection site haemorrhage [Unknown]
  - Nodule [Unknown]
  - Injection site extravasation [Unknown]
  - Skin irritation [Unknown]

NARRATIVE: CASE EVENT DATE: 20160914
